FAERS Safety Report 7598004-3 (Version None)
Quarter: 2011Q3

REPORT INFORMATION
  Report Type: 
  Country: None (occurrence: None)
  Receive Date: 20110708
  Receipt Date: 20110627
  Transmission Date: 20111222
  Serious: Yes (Death, Hospitalization, Disabling)
  Sender: FDA-Public Use
  Company Number: ZA-CELGENEUS-143-C5013-10112431

PATIENT
  Sex: Male
  Weight: 72 kg

DRUGS (12)
  1. LENALIDOMIDE [Suspect]
     Dosage: 25 MILLIGRAM
     Route: 048
     Dates: start: 20101116, end: 20101120
  2. PREDNISONE [Suspect]
     Dosage: 10 MILLIGRAM
     Route: 065
     Dates: start: 20101116, end: 20101121
  3. LENALIDOMIDE [Suspect]
     Indication: PROSTATE CANCER
     Dosage: 25 MILLIGRAM
     Route: 048
     Dates: start: 20100921
  4. PREDNISONE [Suspect]
     Indication: PROSTATE CANCER
     Dosage: 10 MILLIGRAM
     Route: 065
     Dates: start: 20100921
  5. ZOFRAN [Concomitant]
     Dosage: 8 MILLIGRAM
     Route: 048
     Dates: start: 20101116, end: 20101118
  6. FLOMAX [Concomitant]
     Indication: MICTURITION DISORDER
     Dosage: .4 MILLIGRAM
     Route: 048
     Dates: start: 20101012
  7. OMEPRAZOLE [Concomitant]
     Indication: GASTRIC ULCER
     Dosage: 20 MILLIGRAM
     Route: 065
     Dates: start: 20101025
  8. DOCETAXEL [Suspect]
     Indication: PROSTATE CANCER
     Dosage: 135 MILLIGRAM
     Route: 065
     Dates: start: 20100921
  9. DOCETAXEL [Suspect]
     Dosage: 130 MILLIGRAM
     Route: 065
     Dates: start: 20101116, end: 20101120
  10. OMEPRAZOLE [Concomitant]
     Route: 065
  11. BETAMETHASONE [Concomitant]
     Indication: PREMEDICATION
     Dosage: 8 MILLIGRAM
     Route: 048
     Dates: start: 20100920
  12. BETAMETHASONE [Concomitant]
     Dosage: 8 MILLIGRAM
     Route: 048
     Dates: start: 20101115, end: 20101120

REACTIONS (2)
  - ISCHAEMIC STROKE [None]
  - PROSTATE CANCER [None]
